FAERS Safety Report 8367404-6 (Version None)
Quarter: 2012Q2

REPORT INFORMATION
  Report Type: 
  Country: None (occurrence: None)
  Receive Date: 20120517
  Receipt Date: 20120504
  Transmission Date: 20120825
  Serious: Yes (Other)
  Sender: FDA-Public Use
  Company Number: GB-MERCK-1205USA01199

PATIENT
  Age: 58 Year
  Sex: Male

DRUGS (2)
  1. VITAMINS (UNSPECIFIED) [Concomitant]
     Indication: HYPERLIPIDAEMIA
     Route: 065
  2. ZOCOR [Suspect]
     Indication: HYPERLIPIDAEMIA
     Route: 048

REACTIONS (1)
  - PROSTATIC DISORDER [None]
